FAERS Safety Report 15228918 (Version 1)
Quarter: 2018Q3

REPORT INFORMATION
  Report Type: Report from Study
  Country: US (occurrence: US)
  Receive Date: 20180801
  Receipt Date: 20180801
  Transmission Date: 20181010
  Serious: No
  Sender: FDA-Public Use
  Company Number: US-AMGEN-USASL2017171401

PATIENT
  Sex: Male

DRUGS (1)
  1. NPLATE [Suspect]
     Active Substance: ROMIPLOSTIM
     Indication: IMMUNE THROMBOCYTOPENIC PURPURA
     Dosage: UNK, QWK
     Route: 065

REACTIONS (5)
  - Chest pain [Unknown]
  - Insomnia [Unknown]
  - Wrong technique in product usage process [Unknown]
  - Paraesthesia [Unknown]
  - Myalgia [Unknown]
